FAERS Safety Report 7249707-1 (Version None)
Quarter: 2011Q1

REPORT INFORMATION
  Report Type: 
  Country: None (occurrence: None)
  Receive Date: 20110121
  Receipt Date: 20110121
  Transmission Date: 20110831
  Serious: Yes (Hospitalization)
  Sender: FDA-Public Use
  Company Number: None

PATIENT
  Sex: Female
  Weight: 70 kg

DRUGS (3)
  1. CYCLOPHOSPHAMIDE [Suspect]
     Dosage: 1120 MG
     Dates: end: 20110105
  2. DOXORUBICIN HCL [Suspect]
     Dosage: 112 MG
     Dates: end: 20110105
  3. NEULASTA [Suspect]
     Dosage: 6 MG
     Dates: end: 20110106

REACTIONS (2)
  - SEPSIS [None]
  - WHITE BLOOD CELL COUNT DECREASED [None]
